FAERS Safety Report 6808738-3 (Version None)
Quarter: 2010Q2

REPORT INFORMATION
  Report Type: 
  Country: None (occurrence: None)
  Receive Date: 20100629
  Receipt Date: 20090811
  Transmission Date: 20101027
  Serious: Yes (Other)
  Sender: FDA-Public Use
  Company Number: US-PFIZER INC-2009253619

PATIENT
  Sex: Male
  Weight: 88.45 kg

DRUGS (1)
  1. VIAGRA [Suspect]
     Indication: RENAL DISORDER
     Dosage: FREQUENCY: 1X\DAY, EVERYDAY;
     Dates: start: 20070101

REACTIONS (1)
  - ERECTION INCREASED [None]
